FAERS Safety Report 5190464-0 (Version None)
Quarter: 2006Q4

REPORT INFORMATION
  Report Type: 
  Country: None (occurrence: None)
  Receive Date: 20061222
  Receipt Date: 20060307
  Transmission Date: 20070319
  Serious: Yes (Death)
  Sender: FDA-Public Use
  Company Number: US-ELI_LILLY_AND_COMPANY-US200606000798

PATIENT
  Age: 68 Year
  Sex: Female
  Weight: 53.514 kg

DRUGS (2)
  1. ZYPREXA [Suspect]
     Indication: INSOMNIA
     Dosage: 5 MG, UNK
     Dates: start: 20050101, end: 20060101
  2. ACTOS [Concomitant]
     Dosage: UNK, UNK
     Dates: start: 20060101, end: 20060528

REACTIONS (2)
  - DEATH [None]
  - DIABETES MELLITUS [None]
